FAERS Safety Report 4301286-4 (Version None)
Quarter: 2004Q1

REPORT INFORMATION
  Report Type: 
  Country: None (occurrence: None)
  Receive Date: 20040220
  Receipt Date: 20040220
  Transmission Date: 20041129
  Serious: Yes (Hospitalization)
  Sender: FDA-Public Use
  Company Number: None

PATIENT
  Age: 53 Year
  Sex: Male
  Weight: 66.6788 kg

DRUGS (2)
  1. TEGRETOL [Suspect]
     Indication: CONVULSION
     Dosage: 400 MG PO BID
     Route: 048
  2. DILANTIN [Suspect]
     Indication: CONVULSION
     Dosage: 200 MG PO BID
     Route: 048

REACTIONS (3)
  - ASTHENIA [None]
  - DYSARTHRIA [None]
  - GAIT DISTURBANCE [None]
